FAERS Safety Report 4712635-7 (Version None)
Quarter: 2005Q3

REPORT INFORMATION
  Report Type: 
  Country: None (occurrence: None)
  Receive Date: 20050711
  Receipt Date: 20050630
  Transmission Date: 20060218
  Serious: Yes (Hospitalization, Other)
  Sender: FDA-Public Use
  Company Number: USA-2003-0012151

PATIENT
  Age: 54 Year
  Sex: Female
  Weight: 78.4723 kg

DRUGS (39)
  1. OXYCONTIN [Suspect]
     Indication: PAIN
     Dosage: 40 MG TID
  2. INSULIN [Concomitant]
  3. HYDROCHLOROTHIAZIDE [Concomitant]
  4. NORVASC [Concomitant]
  5. MONOPRIL [Concomitant]
  6. CARDURA [Concomitant]
  7. ZYRTEC [Concomitant]
  8. CHOLESTYRAMINE [Concomitant]
  9. PERI-COLACE (CASANTHRANOL) [Concomitant]
  10. AMBIEN [Concomitant]
  11. VALIUM [Concomitant]
  12. PERCOCET [Concomitant]
  13. FLONASE [Concomitant]
  14. COMBIVENT (SALBUTAMOL SULFATE, IPROTROPIUM BROMIDE) [Concomitant]
  15. ZOLOFT [Concomitant]
  16. ASPIRIN TAB [Concomitant]
  17. ZANTAC [Concomitant]
  18. ALBUTEROL [Concomitant]
  19. ATROVENT [Concomitant]
  20. PRILOSEC [Concomitant]
  21. LASIX [Concomitant]
  22. POTASSIUM CHLORIDE [Concomitant]
  23. PROZAC [Concomitant]
  24. RITALIN [Concomitant]
  25. REGLAN [Concomitant]
  26. NOVOLIN 70/30 (INSULIN HUMAN INJECTION, ISOPHANE, INSULIN HUMAN ) [Concomitant]
  27. WELLBUTRIN [Concomitant]
  28. TYLENOL [Concomitant]
  29. TRAZODONE (TRAZODONE) [Concomitant]
  30. PRAVACHOL [Concomitant]
  31. HUMIBID [Concomitant]
  32. BUSPAR [Concomitant]
  33. BECLOVENT (BECLOMETASONE DIPROPIONATE) [Concomitant]
  34. CLONAZEPAM [Concomitant]
  35. HISMINAL [Concomitant]
  36. CLARITIN [Concomitant]
  37. ZYRTEC [Concomitant]
  38. DOCUSATE SODIUM [Concomitant]
  39. SURMONTIL [Concomitant]

REACTIONS (52)
  - ABDOMINAL PAIN [None]
  - ABDOMINAL PAIN UPPER [None]
  - AMNESIA [None]
  - ANOREXIA [None]
  - ANXIETY [None]
  - ARTHRALGIA [None]
  - ASTHENIA [None]
  - BACK PAIN [None]
  - BLOOD CREATINE PHOSPHOKINASE INCREASED [None]
  - BLOOD CREATININE INCREASED [None]
  - CERVICAL SPINAL STENOSIS [None]
  - CHEST DISCOMFORT [None]
  - CHEST PAIN [None]
  - CHILLS [None]
  - CONDITION AGGRAVATED [None]
  - CONSTIPATION [None]
  - DECREASED APPETITE [None]
  - DEPRESSION [None]
  - DIARRHOEA [None]
  - DIZZINESS [None]
  - DRUG DEPENDENCE [None]
  - DRUG INEFFECTIVE [None]
  - DRUG SCREEN POSITIVE [None]
  - DRUG WITHDRAWAL SYNDROME [None]
  - DYSARTHRIA [None]
  - EXCORIATION [None]
  - FALL [None]
  - FATIGUE [None]
  - FLAT AFFECT [None]
  - GROIN PAIN [None]
  - INADEQUATE ANALGESIA [None]
  - INTERMITTENT CLAUDICATION [None]
  - MOOD ALTERED [None]
  - MUSCLE SPASMS [None]
  - MYALGIA [None]
  - MYOCARDIAL ISCHAEMIA [None]
  - MYOPATHY [None]
  - NASOPHARYNGITIS [None]
  - NAUSEA [None]
  - ONYCHALGIA [None]
  - PAIN [None]
  - PAIN IN EXTREMITY [None]
  - POLLAKIURIA [None]
  - POLYSUBSTANCE ABUSE [None]
  - PYREXIA [None]
  - SHOULDER PAIN [None]
  - SOMNOLENCE [None]
  - SUICIDAL IDEATION [None]
  - TEARFULNESS [None]
  - TOE DEFORMITY [None]
  - VOMITING [None]
  - WEIGHT DECREASED [None]
